FAERS Safety Report 6600815-5 (Version None)
Quarter: 2010Q1

REPORT INFORMATION
  Report Type: 
  Country: None (occurrence: None)
  Receive Date: 20100223
  Receipt Date: 20100223
  Transmission Date: 20100710
  Serious: Yes (Other)
  Sender: FDA-Public Use
  Company Number: None

PATIENT
  Age: 34 Year
  Sex: Female
  Weight: 95.2554 kg

DRUGS (1)
  1. PROMETRIUM [Suspect]
     Indication: LUTEAL PHASE DEFICIENCY
     Dosage: 200MG DAILY PO
     Route: 048
     Dates: start: 20100204, end: 20100214

REACTIONS (5)
  - FATIGUE [None]
  - HEADACHE [None]
  - RASH [None]
  - VAGINAL ULCERATION [None]
  - VULVOVAGINAL DRYNESS [None]
